FAERS Safety Report 13387177 (Version 2)
Quarter: 2017Q2

REPORT INFORMATION
  Report Type: Spontaneous
  Country: US (occurrence: US)
  Receive Date: 20170330
  Receipt Date: 20170512
  Transmission Date: 20170830
  Serious: Yes (Hospitalization)
  Sender: FDA-Public Use
  Company Number: US-ASTRAZENECA-2017SE31654

PATIENT
  Age: 66 Year
  Sex: Female
  Weight: 63.5 kg

DRUGS (3)
  1. SYMBICORT [Suspect]
     Active Substance: BUDESONIDE\FORMOTEROL FUMARATE DIHYDRATE
     Indication: CHRONIC OBSTRUCTIVE PULMONARY DISEASE
     Dosage: 160/4.5 UG, 1 PUFF TWICE DAILY
     Route: 055
     Dates: start: 2012
  2. SYMBICORT [Suspect]
     Active Substance: BUDESONIDE\FORMOTEROL FUMARATE DIHYDRATE
     Indication: CHRONIC OBSTRUCTIVE PULMONARY DISEASE
     Dosage: 160/4.5 UG, 1 PUFF TWICE DAILY
     Route: 055
     Dates: start: 201702
  3. SYMBICORT [Suspect]
     Active Substance: BUDESONIDE\FORMOTEROL FUMARATE DIHYDRATE
     Indication: CHRONIC OBSTRUCTIVE PULMONARY DISEASE
     Dosage: 160/4.5 UG, 1 PUFF TWICE DAILY
     Route: 055
     Dates: start: 201701

REACTIONS (6)
  - Visual impairment [Not Recovered/Not Resolved]
  - Off label use [Not Recovered/Not Resolved]
  - Device failure [Unknown]
  - Pneumonia [Unknown]
  - Chronic obstructive pulmonary disease [Unknown]
  - Device malfunction [Unknown]

NARRATIVE: CASE EVENT DATE: 2012
